FAERS Safety Report 13050527 (Version 1)
Quarter: 2016Q4

REPORT INFORMATION
  Report Type: Spontaneous
  Country: US (occurrence: US)
  Receive Date: 20161221
  Receipt Date: 20161221
  Transmission Date: 20170207
  Serious: No
  Sender: FDA-Public Use
  Company Number: US-009507513-1612USA005494

PATIENT
  Sex: Male

DRUGS (12)
  1. SPIRONOLACT [Concomitant]
  2. AZITHROMYCIN ANHYDROUS. [Concomitant]
     Active Substance: AZITHROMYCIN ANHYDROUS
  3. LORAZEPAM. [Concomitant]
     Active Substance: LORAZEPAM
  4. LIPITOR [Concomitant]
     Active Substance: ATORVASTATIN CALCIUM
  5. REMERON [Concomitant]
     Active Substance: MIRTAZAPINE
  6. REMERON [Concomitant]
     Active Substance: MIRTAZAPINE
  7. PROCHLORPERAZINE. [Concomitant]
     Active Substance: PROCHLORPERAZINE
  8. INTRON A [Suspect]
     Active Substance: INTERFERON ALFA-2B
     Indication: MALIGNANT MELANOMA
     Dosage: 2.5 ML, TIW
     Route: 058
     Dates: start: 20160908
  9. TYLENOL [Concomitant]
     Active Substance: ACETAMINOPHEN
  10. NYSTATIN. [Concomitant]
     Active Substance: NYSTATIN
  11. IRBESARTAN. [Concomitant]
     Active Substance: IRBESARTAN
  12. DILTIAZEM. [Concomitant]
     Active Substance: DILTIAZEM

REACTIONS (9)
  - Diarrhoea [Unknown]
  - Weight decreased [Unknown]
  - Eye irritation [Unknown]
  - Alopecia [Unknown]
  - Headache [Unknown]
  - Decreased appetite [Unknown]
  - Fatigue [Unknown]
  - Influenza like illness [Unknown]
  - Dysgeusia [Unknown]
